FAERS Safety Report 8796788 (Version 1)
Quarter: 2012Q4

REPORT INFORMATION
  Report Type: Report from Study
  Country: CN (occurrence: CN)
  Receive Date: 20120917
  Receipt Date: 20120917
  Transmission Date: 20130627
  Serious: Yes (Hospitalization)
  Sender: FDA-Public Use
  Company Number: CN-UCBSA-065087

PATIENT
  Age: 28 Year
  Sex: Male
  Weight: 61.4 kg

DRUGS (4)
  1. ROTIGOTINE [Suspect]
     Route: 062
     Dates: start: 20120822, end: 20120825
  2. ROTIGOTINE [Suspect]
     Route: 062
     Dates: start: 20120819, end: 20120822
  3. ROTIGOTINE [Suspect]
     Route: 062
     Dates: start: 20120813, end: 20120814
  4. DOMPERIDONE [Concomitant]
     Indication: ABDOMINAL DISTENSION
     Route: 048
     Dates: start: 20120902, end: 20120905

REACTIONS (3)
  - Pulmonary tuberculosis [Not Recovered/Not Resolved]
  - Peritoneal tuberculosis [Not Recovered/Not Resolved]
  - Tuberculous pleurisy [Not Recovered/Not Resolved]
